FAERS Safety Report 24748797 (Version 1)
Quarter: 2024Q4

REPORT INFORMATION
  Report Type: Spontaneous
  Country: FR (occurrence: FR)
  Receive Date: 20241218
  Receipt Date: 20241218
  Transmission Date: 20250114
  Serious: Yes (Congenital Anomaly, Other)
  Sender: VIIV
  Company Number: None

PATIENT

DRUGS (2)
  1. DOVATO [Suspect]
     Active Substance: DOLUTEGRAVIR SODIUM\LAMIVUDINE
     Indication: HIV infection
     Dosage: 1 DF, QD (1 TIME/DAY) (50 MG/300 MG)
     Route: 064
     Dates: start: 20240325, end: 20241123
  2. TIVICAY [Concomitant]
     Active Substance: DOLUTEGRAVIR SODIUM
     Indication: HIV infection
     Dosage: 1 DF, QD
     Route: 064
     Dates: start: 20241008, end: 20241123

REACTIONS (3)
  - Hypospadias [Not Recovered/Not Resolved]
  - Congenital genital malformation male [Not Recovered/Not Resolved]
  - Foetal exposure during pregnancy [Unknown]

NARRATIVE: CASE EVENT DATE: 20241123
